FAERS Safety Report 10196005 (Version 1)
Quarter: 2014Q2

REPORT INFORMATION
  Report Type: Spontaneous
  Country: US (occurrence: US)
  Receive Date: 20140527
  Receipt Date: 20140527
  Transmission Date: 20141212
  Serious: No
  Sender: FDA-Public Use
  Company Number: US-PFIZER INC-2014141304

PATIENT
  Sex: Female

DRUGS (4)
  1. HYDROCODONE [Concomitant]
     Indication: PAIN
     Dosage: UNK
  2. HYDROCODONE [Concomitant]
     Indication: NEURALGIA
  3. LYRICA [Suspect]
     Dosage: UNK
  4. LYRICA [Suspect]
     Dosage: 1 DF, AT NIGHT

REACTIONS (3)
  - Euphoric mood [Unknown]
  - Dizziness [Unknown]
  - Muscular weakness [Unknown]
